FAERS Safety Report 12664419 (Version 1)
Quarter: 2016Q3

REPORT INFORMATION
  Report Type: Report from Study
  Country: TR (occurrence: TR)
  Receive Date: 20160818
  Receipt Date: 20160818
  Transmission Date: 20161109
  Serious: Yes (Other)
  Sender: FDA-Public Use
  Company Number: TR-ROCHE-1813603

PATIENT
  Age: 66 Year
  Sex: Female

DRUGS (2)
  1. COBIMETINIB [Suspect]
     Active Substance: COBIMETINIB
     Indication: METASTATIC MALIGNANT MELANOMA
     Dosage: 1X60 MG
     Route: 048
     Dates: start: 201507
  2. VEMURAFENIB [Suspect]
     Active Substance: VEMURAFENIB
     Indication: METASTATIC MALIGNANT MELANOMA
     Dosage: 2X640 MG
     Route: 048
     Dates: start: 201504, end: 20160812

REACTIONS (1)
  - Nephropathy [Recovered/Resolved]

NARRATIVE: CASE EVENT DATE: 20160621
